FAERS Safety Report 23059879 (Version 1)
Quarter: 2023Q4

REPORT INFORMATION
  Report Type: Report from Study
  Country: US (occurrence: US)
  Receive Date: 20231012
  Receipt Date: 20231012
  Transmission Date: 20240110
  Serious: Yes (Life-Threatening, Hospitalization)
  Sender: FDA-Public Use
  Company Number: US-AMX-004124

PATIENT
  Age: 65 Year
  Sex: Male

DRUGS (1)
  1. RELYVRIO [Suspect]
     Active Substance: SODIUM PHENYLBUTYRATE\TAURURSODIOL
     Indication: Amyotrophic lateral sclerosis
     Dosage: 1 SACHET ONCE DAILY FOR 3 WEEKS, THEN 1 SACHET TWICE DAILY
     Route: 048
     Dates: start: 20230616

REACTIONS (11)
  - Pneumonia [Recovered/Resolved]
  - Unresponsive to stimuli [Recovered/Resolved]
  - Intentional dose omission [Unknown]
  - Dyspnoea [Not Recovered/Not Resolved]
  - Defaecation urgency [Unknown]
  - Respiratory disorder [Unknown]
  - Faeces soft [Unknown]
  - Polydipsia [Not Recovered/Not Resolved]
  - Product use complaint [Unknown]
  - Fatigue [Unknown]
  - Upper respiratory tract infection [Recovered/Resolved]

NARRATIVE: CASE EVENT DATE: 20230617
